FAERS Safety Report 9685943 (Version 1)
Quarter: 2013Q4

REPORT INFORMATION
  Report Type: Spontaneous
  Country: US (occurrence: US)
  Receive Date: 20131113
  Receipt Date: 20131113
  Transmission Date: 20140711
  Serious: No
  Sender: FDA-Public Use
  Company Number: US-BAYER-2013-137578

PATIENT
  Age: 42 Year
  Sex: Female
  Weight: 54 kg

DRUGS (2)
  1. ALEVE TABLET [Suspect]
     Indication: NECK PAIN
  2. VICODIN [Concomitant]

REACTIONS (2)
  - Abdominal pain upper [None]
  - Off label use [None]
